FAERS Safety Report 9115110 (Version 1)
Quarter: 2013Q1

REPORT INFORMATION
  Report Type: Spontaneous
  Country: US (occurrence: None)
  Receive Date: 20130220
  Receipt Date: 20130220
  Transmission Date: 20140127
  Serious: No
  Sender: FDA-Public Use
  Company Number: None

PATIENT
  Age: 79 Year
  Sex: Male

DRUGS (1)
  1. BACITRACIN ZINC AND POLYMYXIN B SULFATE [Suspect]
     Dates: start: 20130125, end: 20130207

REACTIONS (2)
  - Dermatitis contact [None]
  - Eye disorder [None]
